FAERS Safety Report 15440207 (Version 2)
Quarter: 2018Q4

REPORT INFORMATION
  Report Type: Report from Study
  Country: CA (occurrence: CA)
  Receive Date: 20180928
  Receipt Date: 20181120
  Transmission Date: 20190204
  Serious: Yes (Hospitalization)
  Sender: FDA-Public Use
  Company Number: CA-ROCHE-2189994

PATIENT
  Age: 57 Year
  Sex: Female

DRUGS (7)
  1. BENADRYL [Concomitant]
     Active Substance: DIPHENHYDRAMINE HYDROCHLORIDE
     Indication: PREMEDICATION
     Route: 048
     Dates: start: 20161115
  2. CORTISON [Concomitant]
     Active Substance: CORTISONE ACETATE
  3. CELEBREX [Concomitant]
     Active Substance: CELECOXIB
  4. TYLENOL [Concomitant]
     Active Substance: ACETAMINOPHEN
     Indication: PREMEDICATION
     Route: 048
     Dates: start: 20161115
  5. RITUXAN [Suspect]
     Active Substance: RITUXIMAB
     Indication: GRANULOMATOSIS WITH POLYANGIITIS
     Route: 042
     Dates: start: 20161115
  6. SOLU-MEDROL [Concomitant]
     Active Substance: METHYLPREDNISOLONE SODIUM SUCCINATE
     Indication: PREMEDICATION
     Route: 042
     Dates: start: 20161115
  7. PANTOPRAZOLE [Concomitant]
     Active Substance: PANTOPRAZOLE

REACTIONS (13)
  - Headache [Recovered/Resolved]
  - Faeces soft [Recovering/Resolving]
  - Pyrexia [Recovered/Resolved]
  - Blood pressure systolic increased [Unknown]
  - Bacterial sepsis [Recovered/Resolved]
  - Heart rate increased [Unknown]
  - Infectious colitis [Recovered/Resolved]
  - Nausea [Recovered/Resolved]
  - Diarrhoea [Recovering/Resolving]
  - Frequent bowel movements [Not Recovered/Not Resolved]
  - Atelectasis [Unknown]
  - Gastrointestinal wall thickening [Unknown]
  - Colitis [Unknown]

NARRATIVE: CASE EVENT DATE: 2018
